FAERS Safety Report 8674325 (Version 3)
Quarter: 2013Q1

REPORT INFORMATION
  Report Type: Spontaneous
  Country: US (occurrence: US)
  Receive Date: 20120720
  Receipt Date: 20130117
  Transmission Date: 20140127
  Serious: Yes (Death)
  Sender: FDA-Public Use
  Company Number: US-BRISTOL-MYERS SQUIBB COMPANY-16762965

PATIENT
  Age: 65 Year
  Sex: Male

DRUGS (1)
  1. YERVOY [Suspect]
     Dosage: 1 DF:50MG/10ML;LOT#918359,EXP:MAY14;1DF:200MG/40ML;LOT#918121,EXP:APR14

REACTIONS (1)
  - Malignant neoplasm progression [Fatal]
